FAERS Safety Report 22899468 (Version 2)
Quarter: 2024Q1

REPORT INFORMATION
  Report Type: Spontaneous
  Country: US (occurrence: US)
  Receive Date: 20230904
  Receipt Date: 20240329
  Transmission Date: 20240410
  Serious: No
  Sender: FDA-Public Use
  Company Number: US-ABBVIE-5378357

PATIENT
  Sex: Male

DRUGS (1)
  1. BENTYL [Suspect]
     Active Substance: DICYCLOMINE HYDROCHLORIDE
     Indication: Irritable bowel syndrome
     Route: 042

REACTIONS (12)
  - Nervous system disorder [Unknown]
  - Fatigue [Unknown]
  - Fall [Unknown]
  - Gait disturbance [Unknown]
  - Headache [Not Recovered/Not Resolved]
  - Somnolence [Unknown]
  - Hypoaesthesia [Unknown]
  - Pain [Not Recovered/Not Resolved]
  - Temperature intolerance [Unknown]
  - Dizziness [Unknown]
  - Irritability [Unknown]
  - Asthenia [Unknown]
